FAERS Safety Report 11820377 (Version 5)
Quarter: 2023Q2

REPORT INFORMATION
  Report Type: Spontaneous
  Country: ES (occurrence: ES)
  Receive Date: 20151210
  Receipt Date: 20230620
  Transmission Date: 20230721
  Serious: Yes (Life-Threatening, Hospitalization, Other)
  Sender: FDA-Public Use
  Company Number: ES-SA-2015SA203573

PATIENT
  Age: 53 Year
  Sex: Female
  Weight: 75 kg

DRUGS (4)
  1. MYOZYME [Suspect]
     Active Substance: ALGLUCOSIDASE ALFA
     Indication: Glycogen storage disease type II
     Dosage: 20 MG/KG,QOW
     Route: 042
     Dates: start: 20110620, end: 20151110
  2. MYOZYME [Suspect]
     Active Substance: ALGLUCOSIDASE ALFA
     Dosage: UNK UNK,QOW
     Route: 042
     Dates: start: 20151210
  3. BISOPROLOL [Concomitant]
     Active Substance: BISOPROLOL
     Indication: Fatigue
     Dosage: UNK
     Dates: start: 2015
  4. HEPARIN [Concomitant]
     Active Substance: HEPARIN SODIUM
     Dosage: UNK

REACTIONS (12)
  - Pulmonary embolism [Recovered/Resolved]
  - Syncope [Recovered/Resolved]
  - Embolism venous [Recovered/Resolved]
  - Palpitations [Recovered/Resolved]
  - Blood creatine phosphokinase increased [Recovered/Resolved]
  - Atrial fibrillation [Recovered/Resolved]
  - Mobility decreased [Unknown]
  - Pain in extremity [Unknown]
  - Chest pain [Recovered/Resolved]
  - Dyspnoea [Recovered/Resolved]
  - Sinus tachycardia [Recovered/Resolved]
  - Bradycardia [Recovered/Resolved]

NARRATIVE: CASE EVENT DATE: 20151101
